FAERS Safety Report 5638864-6 (Version None)
Quarter: 2008Q1

REPORT INFORMATION
  Report Type: 
  Country: None (occurrence: None)
  Receive Date: 20080222
  Receipt Date: 20080222
  Transmission Date: 20080703
  Serious: Yes (Hospitalization)
  Sender: FDA-Public Use
  Company Number: None

PATIENT
  Sex: Male
  Weight: 55 kg

DRUGS (13)
  1. SUNITINIB [Suspect]
     Indication: RENAL CANCER METASTATIC
     Dosage: 50 MG DAILY ORAL
     Route: 048
     Dates: start: 20071107, end: 20071223
  2. SUNITINIB [Suspect]
     Indication: RENAL CANCER METASTATIC
     Dosage: 37.5 MG DAILY ORAL
     Route: 048
     Dates: start: 20080102, end: 20080218
  3. SYNTHROID [Concomitant]
  4. PEPCID [Concomitant]
  5. SENNA PLUS [Concomitant]
  6. PREPARATION H OINTMENT [Concomitant]
  7. BIAFINE EMULSION TOPICAL [Concomitant]
  8. NYSTATIN [Concomitant]
  9. LIDOCAINE HCL VISCOUS [Concomitant]
  10. COMPAZINE [Concomitant]
  11. ZOFRAN [Concomitant]
  12. FLUVOXAMINE MALEATE [Concomitant]
  13. SUMATRIPTAN SUCCINATE [Concomitant]

REACTIONS (2)
  - ABDOMINAL PAIN [None]
  - RENAL MASS [None]
